FAERS Safety Report 9418737 (Version 1)
Quarter: 2013Q3

REPORT INFORMATION
  Report Type: Spontaneous
  Country: US (occurrence: US)
  Receive Date: 20130725
  Receipt Date: 20130725
  Transmission Date: 20140515
  Serious: No
  Sender: FDA-Public Use
  Company Number: US-PFIZER INC-2013214831

PATIENT
  Age: 42 Year
  Sex: Female
  Weight: 29.93 kg

DRUGS (1)
  1. PRISTIQ [Suspect]
     Indication: ANXIETY
     Dosage: 50 MG, 1X/DAY
     Dates: start: 20130714

REACTIONS (3)
  - Decreased appetite [Recovering/Resolving]
  - Insomnia [Recovering/Resolving]
  - Thinking abnormal [Recovering/Resolving]
